FAERS Safety Report 21255461 (Version 1)
Quarter: 2022Q3

REPORT INFORMATION
  Report Type: Spontaneous
  Country: US (occurrence: US)
  Receive Date: 20220825
  Receipt Date: 20220825
  Transmission Date: 20221027
  Serious: No
  Sender: FDA-Public Use
  Company Number: US-BRISTOL-MYERS SQUIBB COMPANY-2022-095408

PATIENT
  Age: 84 Year
  Sex: Male
  Weight: 92.99 kg

DRUGS (1)
  1. REVLIMID [Suspect]
     Active Substance: LENALIDOMIDE
     Indication: Plasma cell myeloma
     Dosage: FREQUENCY : 3W, 1W OFF
     Route: 048
     Dates: start: 20220405

REACTIONS (4)
  - Lethargy [Unknown]
  - Dizziness [Unknown]
  - Vision blurred [Unknown]
  - Muscular weakness [Unknown]
